FAERS Safety Report 7383275-9 (Version None)
Quarter: 2011Q1

REPORT INFORMATION
  Report Type: 
  Country: None (occurrence: None)
  Receive Date: 20110330
  Receipt Date: 20110325
  Transmission Date: 20110831
  Serious: Yes (Death)
  Sender: FDA-Public Use
  Company Number: PHHY2011NL24469

PATIENT
  Sex: Male

DRUGS (2)
  1. ZOMETA [Suspect]
     Indication: PROSTATE CANCER METASTATIC
     Dosage: 4 MG, UNK
     Dates: start: 20090201
  2. ZOMETA [Suspect]
     Dosage: 4MG/5ML, UNK
     Dates: start: 20110203

REACTIONS (1)
  - DEATH [None]
